FAERS Safety Report 9494450 (Version 1)
Quarter: 2013Q3

REPORT INFORMATION
  Report Type: Spontaneous
  Country: NO (occurrence: NO)
  Receive Date: 20130903
  Receipt Date: 20130903
  Transmission Date: 20140515
  Serious: Yes (Death, Other)
  Sender: FDA-Public Use
  Company Number: PHHY2013NO093838

PATIENT
  Age: 63 Year
  Sex: Male

DRUGS (2)
  1. METHOTREXATE [Suspect]
     Dosage: 5 MG, UNK
  2. STELARA [Suspect]
     Dosage: 90 MG, UNK
     Route: 058
     Dates: start: 201003

REACTIONS (3)
  - Hepatic cancer [Fatal]
  - Hepatic steatosis [Unknown]
  - Oesophageal varices haemorrhage [Unknown]
